FAERS Safety Report 5895281-1 (Version None)
Quarter: 2008Q3

REPORT INFORMATION
  Report Type: 
  Country: None (occurrence: None)
  Receive Date: 20080923
  Receipt Date: 20080923
  Transmission Date: 20090109
  Serious: Yes (Hospitalization, Disabling, Other)
  Sender: FDA-Public Use
  Company Number: None

PATIENT
  Age: 45 Year
  Sex: Female
  Weight: 45.3597 kg

DRUGS (1)
  1. LISINOPRIL [Suspect]
     Indication: HYPERTENSION
     Dosage: 1 TABLET
     Dates: start: 20080822, end: 20080822

REACTIONS (5)
  - APHONIA [None]
  - COUGH [None]
  - INSOMNIA [None]
  - LABILE BLOOD PRESSURE [None]
  - SWELLING [None]
